FAERS Safety Report 5468448-4 (Version None)
Quarter: 2007Q3

REPORT INFORMATION
  Report Type: 
  Country: None (occurrence: None)
  Receive Date: 20070926
  Receipt Date: 20070621
  Transmission Date: 20080115
  Serious: No
  Sender: FDA-Public Use
  Company Number: US-BRISTOL-MYERS SQUIBB COMPANY-13750146

PATIENT
  Age: 50 Year
  Sex: Female
  Weight: 56 kg

DRUGS (8)
  1. ORENCIA [Suspect]
     Indication: RHEUMATOID ARTHRITIS
     Route: 042
     Dates: start: 20060823
  2. METHOTREXATE [Concomitant]
  3. HUMALOG [Concomitant]
  4. BUSPAR [Concomitant]
  5. WELLBUTRIN [Concomitant]
  6. CLONAZEPAM [Concomitant]
  7. ADVIL LIQUI-GELS [Concomitant]
  8. SULINDAC [Concomitant]

REACTIONS (5)
  - BLOOD GLUCOSE FLUCTUATION [None]
  - DIARRHOEA [None]
  - NAUSEA [None]
  - VOMITING [None]
  - WEIGHT DECREASED [None]
